FAERS Safety Report 15622721 (Version 3)
Quarter: 2018Q4

REPORT INFORMATION
  Report Type: Spontaneous
  Country: ZA (occurrence: ZA)
  Receive Date: 20181115
  Receipt Date: 20181204
  Transmission Date: 20190205
  Serious: No
  Sender: FDA-Public Use
  Company Number: ZA-PFIZER INC-2018463098

PATIENT
  Age: 28 Year
  Sex: Female

DRUGS (4)
  1. ELTROXIN [Suspect]
     Active Substance: LEVOTHYROXINE
     Dosage: 50 UG, UNK
  2. VISANNE [Suspect]
     Active Substance: DIENOGEST
     Dosage: 2 MG, UNK
  3. ESTROFEM [ESTRADIOL] [Suspect]
     Active Substance: ESTRADIOL
     Dosage: 2 MG, UNK
  4. PROVERA [Suspect]
     Active Substance: MEDROXYPROGESTERONE ACETATE
     Indication: CONTRACEPTION
     Dosage: 5 MG, UNK

REACTIONS (1)
  - No adverse event [Recovered/Resolved]
